FAERS Safety Report 8544723-1 (Version None)
Quarter: 2012Q3

REPORT INFORMATION
  Report Type: 
  Country: None (occurrence: None)
  Receive Date: 20120727
  Receipt Date: 20120717
  Transmission Date: 20120928
  Serious: No
  Sender: FDA-Public Use
  Company Number: US-009507513-1207USA005908

PATIENT

DRUGS (4)
  1. SINGULAIR [Suspect]
     Indication: PNEUMONIA
     Dosage: 10 MG, QD
     Route: 048
     Dates: start: 20120707, end: 20120712
  2. WELLBUTRIN [Concomitant]
  3. SYNTHROID [Concomitant]
  4. PRINIVIL [Concomitant]

REACTIONS (1)
  - INSOMNIA [None]
